FAERS Safety Report 25931318 (Version 1)
Quarter: 2025Q4

REPORT INFORMATION
  Report Type: Spontaneous
  Country: CN (occurrence: CN)
  Receive Date: 20251016
  Receipt Date: 20251016
  Transmission Date: 20260119
  Serious: Yes (Life-Threatening, Hospitalization)
  Sender: PFIZER
  Company Number: CN-PFIZER INC-PV202500121594

PATIENT
  Age: 31 Year
  Sex: Female

DRUGS (3)
  1. CYTARABINE [Suspect]
     Active Substance: CYTARABINE
     Indication: Acute myeloid leukaemia
     Dosage: 500 MG, 1X/DAY
     Route: 041
     Dates: start: 20250920, end: 20250924
  2. IDARUBICIN HYDROCHLORIDE [Suspect]
     Active Substance: IDARUBICIN HYDROCHLORIDE
     Indication: Acute myeloid leukaemia
     Dosage: 10 MG, 1X/DAY
     Route: 042
     Dates: start: 20250920, end: 20250921
  3. AZACITIDINE [Suspect]
     Active Substance: AZACITIDINE
     Indication: Acute myeloid leukaemia
     Dosage: 100 MG, 1X/DAY
     Route: 058
     Dates: start: 20250920, end: 20250926

REACTIONS (9)
  - Myelosuppression [Unknown]
  - Pyrexia [Unknown]
  - Depressed level of consciousness [Unknown]
  - Fall [Unknown]
  - Scalp haematoma [Unknown]
  - Skull fracture [Unknown]
  - Subarachnoid haemorrhage [Unknown]
  - Ecchymosis [Unknown]
  - Petechiae [Unknown]

NARRATIVE: CASE EVENT DATE: 20251005
